FAERS Safety Report 14631650 (Version 1)
Quarter: 2018Q1

REPORT INFORMATION
  Report Type: Spontaneous
  Country: CA (occurrence: CA)
  Receive Date: 20180313
  Receipt Date: 20180313
  Transmission Date: 20180509
  Serious: Yes (Other)
  Sender: FDA-Public Use
  Company Number: CA-PFIZER INC-2018091345

PATIENT
  Age: 37 Year
  Sex: Female

DRUGS (1)
  1. COLESTID [Suspect]
     Active Substance: COLESTIPOL HYDROCHLORIDE
     Indication: COLITIS
     Dosage: UNK

REACTIONS (4)
  - Diarrhoea [Unknown]
  - Pneumonia [Unknown]
  - Skin infection [Unknown]
  - Product use in unapproved indication [Unknown]
